FAERS Safety Report 13042922 (Version 3)
Quarter: 2017Q1

REPORT INFORMATION
  Report Type: Spontaneous
  Country: US (occurrence: US)
  Receive Date: 20161219
  Receipt Date: 20170125
  Transmission Date: 20170428
  Serious: No
  Sender: FDA-Public Use
  Company Number: US-JAZZ-2016-US-022891

PATIENT
  Sex: Female

DRUGS (24)
  1. XYREM [Suspect]
     Active Substance: SODIUM OXYBATE
     Indication: CATAPLEXY
     Dosage: DOSE ADJUSTMENTS
     Route: 048
     Dates: start: 201510, end: 201611
  2. ADRENAL [Concomitant]
     Active Substance: EPINEPHRINE
  3. ULTRAZYME [Concomitant]
  4. ANDROGRAPHIS                       /01657601/ [Concomitant]
  5. COD LIVER OIL [Concomitant]
     Active Substance: COD LIVER OIL
  6. GUTTS [Concomitant]
  7. POTASSIUM [Concomitant]
     Active Substance: POTASSIUM
  8. FOLBEE PLUS [Concomitant]
  9. AMINO 75 [Concomitant]
  10. WHITE WILLOW BARK [Concomitant]
  11. ARTIFICIAL TEARS                   /00222401/ [Concomitant]
  12. ACIDOPHILUS [Concomitant]
     Active Substance: LACTOBACILLUS ACIDOPHILUS
  13. MAX                                /00546002/ [Concomitant]
  14. MULTIVITAMINS                      /00116001/ [Concomitant]
  15. IODINE. [Concomitant]
     Active Substance: IODINE
  16. PROBIOTIC                          /06395501/ [Concomitant]
     Active Substance: BIFIDOBACTERIUM ANIMALIS SUBSP. LACTIS
  17. XYREM [Suspect]
     Active Substance: SODIUM OXYBATE
     Indication: NARCOLEPSY
     Dosage: 2.25 G, BID
     Route: 048
     Dates: start: 201510, end: 201510
  18. CRANACTIN [Concomitant]
     Active Substance: DIETARY SUPPLEMENT
  19. GARLIC                             /01570501/ [Concomitant]
     Active Substance: GARLIC
  20. XYREM [Suspect]
     Active Substance: SODIUM OXYBATE
     Dosage: 3.5 G, BID
     Route: 048
     Dates: start: 201611
  21. ADINE                              /01314202/ [Concomitant]
  22. CYCLOBENZAPRINE [Concomitant]
     Active Substance: CYCLOBENZAPRINE
  23. DRENAMIN [Concomitant]
  24. EFFEXOR [Concomitant]
     Active Substance: VENLAFAXINE HYDROCHLORIDE

REACTIONS (7)
  - Treatment noncompliance [Unknown]
  - Muscle spasms [Unknown]
  - Pain [Unknown]
  - Dizziness [Not Recovered/Not Resolved]
  - Therapeutic response unexpected [Unknown]
  - Malaise [Unknown]
  - Acne [Not Recovered/Not Resolved]
